FAERS Safety Report 8595643-8 (Version None)
Quarter: 2012Q3

REPORT INFORMATION
  Report Type: 
  Country: None (occurrence: None)
  Receive Date: 20120801
  Receipt Date: 20101007
  Transmission Date: 20120928
  Serious: No
  Sender: FDA-Public Use
  Company Number: THQ2010A03055

PATIENT
  Sex: Female

DRUGS (1)
  1. ACTOS [Suspect]

REACTIONS (1)
  - SUICIDE ATTEMPT [None]
